FAERS Safety Report 5863261-8 (Version None)
Quarter: 2008Q3

REPORT INFORMATION
  Report Type: 
  Country: None (occurrence: None)
  Receive Date: 20080828
  Receipt Date: 20080816
  Transmission Date: 20090109
  Serious: Yes (Death, Other)
  Sender: FDA-Public Use
  Company Number: EG-ROCHE-581298

PATIENT
  Age: 34 Year
  Sex: Male

DRUGS (2)
  1. PEG-INTERFERON A-2A (RO 25-8310) [Suspect]
     Dosage: DRUG NAME: PEGFERON
     Route: 065
     Dates: start: 20080611, end: 20080813
  2. VIRIN [Concomitant]
     Dates: start: 20080611, end: 20080813

REACTIONS (2)
  - PYREXIA [None]
  - SURGERY [None]
